FAERS Safety Report 12109083 (Version 2)
Quarter: 2016Q1

REPORT INFORMATION
  Report Type: Report from Study
  Country: US (occurrence: US)
  Receive Date: 20160224
  Receipt Date: 20160308
  Transmission Date: 20160526
  Serious: Yes (Hospitalization, Other)
  Sender: FDA-Public Use
  Company Number: PHHO2016US002809

PATIENT
  Age: 79 Year
  Sex: Male
  Weight: 92 kg

DRUGS (6)
  1. DOXYCYCLINE. [Concomitant]
     Active Substance: DOXYCYCLINE
     Indication: PRODUCT USED FOR UNKNOWN INDICATION
     Dosage: UNK
     Route: 065
  2. EVEROLIMUS [Concomitant]
     Active Substance: EVEROLIMUS
     Indication: CHEMOTHERAPY
     Dosage: UNK
     Route: 065
     Dates: start: 201208, end: 201208
  3. RUXOLITINIB [Concomitant]
     Active Substance: RUXOLITINIB
     Indication: CHEMOTHERAPY
     Dosage: UNK
     Route: 065
     Dates: start: 201310, end: 201311
  4. CEFDINIR. [Concomitant]
     Active Substance: CEFDINIR
     Indication: PRODUCT USED FOR UNKNOWN INDICATION
     Dosage: UNK
     Route: 065
  5. CEFEPIME [Concomitant]
     Active Substance: CEFEPIME HYDROCHLORIDE
     Indication: PRODUCT USED FOR UNKNOWN INDICATION
     Dosage: UNK
     Route: 065
  6. FARYDAK [Suspect]
     Active Substance: PANOBINOSTAT
     Indication: NON-HODGKIN^S LYMPHOMA
     Dosage: UNK
     Route: 048
     Dates: start: 20151203

REACTIONS (6)
  - Pneumonia [Unknown]
  - Neutrophil count decreased [Unknown]
  - Platelet count decreased [Recovering/Resolving]
  - Lymphocyte count decreased [Recovering/Resolving]
  - Upper respiratory tract infection [Unknown]
  - Fatigue [Recovering/Resolving]

NARRATIVE: CASE EVENT DATE: 20151204
